FAERS Safety Report 15428281 (Version 1)
Quarter: 2018Q3

REPORT INFORMATION
  Report Type: Other
  Country: ES (occurrence: ES)
  Receive Date: 20180926
  Receipt Date: 20180926
  Transmission Date: 20181010
  Serious: Yes (Other)
  Sender: FDA-Public Use
  Company Number: ES-APOTEX-2018AP021256

PATIENT
  Age: 64 Year
  Sex: Female

DRUGS (3)
  1. PARACETAMOL [Suspect]
     Active Substance: ACETAMINOPHEN
     Indication: PRODUCT USED FOR UNKNOWN INDICATION
     Dosage: 1 G, UNK (1 G EVERY EIGHT HOURS)
     Route: 065
     Dates: start: 20170311
  2. PANTOPRAZOLE [Suspect]
     Active Substance: PANTOPRAZOLE
     Indication: PRODUCT USED FOR UNKNOWN INDICATION
     Dosage: 40 MG, QD (40 MG EVERY 24 HOURS)
     Route: 065
     Dates: start: 20170311
  3. LEVOFLOXACIN. [Suspect]
     Active Substance: LEVOFLOXACIN
     Indication: PRODUCT USED FOR UNKNOWN INDICATION
     Dosage: 500 MG, Q.12H (500 MG EVERY 12 HOURS)
     Route: 065
     Dates: start: 20170311

REACTIONS (1)
  - Hepatitis cholestatic [Recovered/Resolved]

NARRATIVE: CASE EVENT DATE: 20170314
